FAERS Safety Report 9258276 (Version 2)
Quarter: 2014Q1

REPORT INFORMATION
  Report Type: Spontaneous
  Country: US (occurrence: US)
  Receive Date: 20130426
  Receipt Date: 20140114
  Transmission Date: 20141002
  Serious: Yes (Hospitalization)
  Sender: FDA-Public Use
  Company Number: US-ASTRAZENECA-2013SE27413

PATIENT
  Age: 62 Year
  Sex: Female
  Weight: 36.3 kg

DRUGS (8)
  1. NEXIUM [Suspect]
     Indication: GASTROOESOPHAGEAL REFLUX DISEASE
     Route: 048
     Dates: start: 2000, end: 2007
  2. NEXIUM [Suspect]
     Indication: GASTROOESOPHAGEAL REFLUX DISEASE
     Route: 048
     Dates: start: 200801
  3. PAIN MEDICATION [Suspect]
     Route: 065
  4. RANITIDINE [Concomitant]
  5. LISINOPRIL [Concomitant]
     Dates: start: 20090409
  6. ZONISAMIDE [Concomitant]
     Dates: start: 20090106
  7. MACRODANTIN [Concomitant]
     Dates: start: 20090424
  8. DIOVAN [Concomitant]
     Route: 048
     Dates: start: 20081015

REACTIONS (7)
  - Drug hypersensitivity [Unknown]
  - Overdose [Unknown]
  - Spinal disorder [Unknown]
  - Osteoporosis [Unknown]
  - Wrist fracture [Unknown]
  - Bone disorder [Unknown]
  - Multiple fractures [Unknown]
